FAERS Safety Report 23281569 (Version 1)
Quarter: 2023Q4

REPORT INFORMATION
  Report Type: Spontaneous
  Country: CN (occurrence: CN)
  Receive Date: 20231211
  Receipt Date: 20231211
  Transmission Date: 20240110
  Serious: Yes (Hospitalization)
  Sender: FDA-Public Use
  Company Number: CN-JNJFOC-20231216555

PATIENT
  Age: 6 Year
  Sex: Male
  Weight: 25 kg

DRUGS (1)
  1. CHILDRENS MOTRIN [Suspect]
     Active Substance: IBUPROFEN
     Indication: Pyrexia
     Route: 048
     Dates: start: 20231204, end: 20231204

REACTIONS (1)
  - Rash pustular [Recovering/Resolving]

NARRATIVE: CASE EVENT DATE: 20231204
